FAERS Safety Report 7704052-2 (Version None)
Quarter: 2011Q3

REPORT INFORMATION
  Report Type: 
  Country: None (occurrence: None)
  Receive Date: 20110729
  Receipt Date: 20110506
  Transmission Date: 20111222
  Serious: Yes (Other)
  Sender: FDA-Public Use
  Company Number: US-JNJFOC-20110504078

PATIENT
  Age: 59 Year
  Sex: Female

DRUGS (15)
  1. FLEXERIL [Concomitant]
  2. IMITREX [Concomitant]
  3. NORVASC [Concomitant]
  4. VERAMYST NOS (FLUTICASONE) [Concomitant]
  5. XANAX [Concomitant]
  6. VICODIN [Concomitant]
  7. BENTYL [Concomitant]
  8. ADVAIR DISKUS 100/50 [Concomitant]
  9. IMODIUM A-D EZ CHEWS [Suspect]
     Indication: IRRITABLE BOWEL SYNDROME
     Dosage: 40 MG, IN 1 DAY, ORAL
     Route: 048
  10. MAXAIR [Concomitant]
  11. LOPRSSOR (METOPROLOL TARTRATE) [Concomitant]
  12. DIOVAN [Concomitant]
  13. FIORICET [Concomitant]
  14. AMBIEN CR [Concomitant]
  15. ACTONEL [Concomitant]

REACTIONS (1)
  - OVERDOSE [None]
